FAERS Safety Report 10040815 (Version 1)
Quarter: 2014Q1

REPORT INFORMATION
  Report Type: Spontaneous
  Country: US (occurrence: None)
  Receive Date: 20140326
  Receipt Date: 20140326
  Transmission Date: 20141002
  Serious: Yes (Other)
  Sender: FDA-Public Use
  Company Number: None

PATIENT
  Age: 64 Year
  Sex: Female
  Weight: 73.48 kg

DRUGS (1)
  1. PROLIA [Suspect]
     Indication: OSTEOPOROSIS
     Dosage: EVERY 6 MONTHS INTO THE MUSCLE
     Route: 030

REACTIONS (7)
  - Bronchitis [None]
  - Lung infection [None]
  - Deafness [None]
  - Community acquired infection [None]
  - Staphylococcal infection [None]
  - Low density lipoprotein increased [None]
  - Immune system disorder [None]
